FAERS Safety Report 6050800 (Version 4)
Quarter: 2015Q1

REPORT INFORMATION
  Report Type: Spontaneous
  Country: JP (occurrence: JP)
  Receive Date: 20030725
  Receipt Date: 20150116
  Transmission Date: 20150721
  Serious: Yes (Death, Hospitalization, Other)
  Sender: FDA-Public Use
  Company Number: PHBS2003JP06779

PATIENT
  Age: 86 Year
  Sex: Female
  Weight: 42 kg

DRUGS (3)
  1. GLIVEC [Suspect]
     Active Substance: IMATINIB MESYLATE
     Indication: CHRONIC MYELOID LEUKAEMIA
     Dosage: 300 MG, QD
     Route: 048
     Dates: start: 20030110, end: 20030624
  2. GLIVEC [Suspect]
     Active Substance: IMATINIB MESYLATE
     Dosage: 400 QD, UNK
     Route: 048
     Dates: end: 20030708
  3. GLIMICRON [Suspect]
     Active Substance: GLICLAZIDE
     Indication: DIABETES MELLITUS
     Dosage: 40 MG, QD
     Route: 048
     Dates: start: 20021213, end: 20030709

REACTIONS (18)
  - White blood cell count decreased [Unknown]
  - Malignant neoplasm progression [Unknown]
  - Lymphocyte count decreased [Unknown]
  - Renal failure [Fatal]
  - Blast crisis in myelogenous leukaemia [Unknown]
  - Ascites [Fatal]
  - Fluid retention [Fatal]
  - Chronic myeloid leukaemia [Unknown]
  - Blast cell count increased [Unknown]
  - Anuria [Fatal]
  - Abdominal mass [Unknown]
  - Metabolic alkalosis [Unknown]
  - Blood glucose increased [Unknown]
  - Pyrexia [Unknown]
  - Blood lactate dehydrogenase increased [Unknown]
  - Oedema peripheral [Fatal]
  - Condition aggravated [Fatal]
  - Eosinophil count decreased [Unknown]

NARRATIVE: CASE EVENT DATE: 20030623
